FAERS Safety Report 19151691 (Version 1)
Quarter: 2021Q2

REPORT INFORMATION
  Report Type: Spontaneous
  Country: US (occurrence: US)
  Receive Date: 20210419
  Receipt Date: 20210419
  Transmission Date: 20210717
  Serious: No
  Sender: FDA-Public Use
  Company Number: US-GLAXOSMITHKLINE-US2021083028

PATIENT
  Sex: Female

DRUGS (3)
  1. FLONASE ALLERGY RELIEF [Suspect]
     Active Substance: FLUTICASONE PROPIONATE
     Indication: NASAL SEPTUM DEVIATION
     Dosage: UNK
  2. FLONASE ALLERGY RELIEF [Suspect]
     Active Substance: FLUTICASONE PROPIONATE
     Indication: NASAL SEPTUM DEVIATION
     Dosage: UNK
  3. FLONASE ALLERGY RELIEF [Suspect]
     Active Substance: FLUTICASONE PROPIONATE

REACTIONS (2)
  - Off label use [Unknown]
  - Product complaint [Unknown]
